FAERS Safety Report 17239849 (Version 5)
Quarter: 2020Q2

REPORT INFORMATION
  Report Type: Report from Study
  Country: US (occurrence: US)
  Receive Date: 20200106
  Receipt Date: 20200602
  Transmission Date: 20200713
  Serious: Yes (Hospitalization, Other)
  Sender: FDA-Public Use
  Company Number: US-TAKEDA-2019TUS074392

PATIENT
  Age: 45 Year
  Sex: Female
  Weight: 109 kg

DRUGS (2)
  1. VEDOLIZUMAB [Suspect]
     Active Substance: VEDOLIZUMAB
     Indication: CROHN^S DISEASE
     Dosage: 300 MILLIGRAM
     Route: 042
     Dates: start: 20191210
  2. VEDOLIZUMAB [Suspect]
     Active Substance: VEDOLIZUMAB
     Dosage: 300 MILLIGRAM, Q4WEEKS
     Route: 042
     Dates: start: 20200130

REACTIONS (24)
  - Blood pressure decreased [Recovered/Resolved]
  - Pyoderma gangrenosum [Unknown]
  - Confusional state [Recovering/Resolving]
  - Skin disorder [Unknown]
  - Multi-vitamin deficiency [Unknown]
  - Nausea [Unknown]
  - Gastrointestinal stoma output increased [Unknown]
  - Vomiting [Unknown]
  - Pain [Unknown]
  - Hyperhidrosis [Unknown]
  - Stoma site irritation [Unknown]
  - Hernia [Unknown]
  - Therapeutic reaction time decreased [Unknown]
  - Dysarthria [Recovering/Resolving]
  - Headache [Not Recovered/Not Resolved]
  - Dizziness [Not Recovered/Not Resolved]
  - Somnolence [Recovering/Resolving]
  - Feeling abnormal [Recovering/Resolving]
  - Off label use [Unknown]
  - Vitamin B complex deficiency [Unknown]
  - Pyrexia [Unknown]
  - Amnesia [Recovering/Resolving]
  - Stoma site discharge [Unknown]
  - Arthralgia [Unknown]

NARRATIVE: CASE EVENT DATE: 201912
